FAERS Safety Report 5265655-0 (Version None)
Quarter: 2007Q1

REPORT INFORMATION
  Report Type: 
  Country: None (occurrence: None)
  Receive Date: 20061213
  Receipt Date: 20050819
  Transmission Date: 20070707
  Serious: Yes (Other)
  Sender: FDA-Public Use
  Company Number: 2005UW12376

PATIENT
  Age: 55 Year
  Sex: Female
  Weight: 46.2896 kg

DRUGS (2)
  1. IRESSA [Suspect]
     Indication: NON-SMALL CELL LUNG CANCER
     Dates: start: 20040601, end: 20050301
  2. ANTIHYPERTENSIVES [Concomitant]

REACTIONS (3)
  - DERMATITIS ACNEIFORM [None]
  - DIARRHOEA [None]
  - HYPOTRICHOSIS [None]
